FAERS Safety Report 7016212-7 (Version None)
Quarter: 2010Q3

REPORT INFORMATION
  Report Type: 
  Country: None (occurrence: None)
  Receive Date: 20100927
  Receipt Date: 20100708
  Transmission Date: 20110219
  Serious: No
  Sender: FDA-Public Use
  Company Number: US-ASTRAZENECA-2008UW07179

PATIENT
  Age: 64 Year
  Sex: Female
  Weight: 77.1 kg

DRUGS (4)
  1. ARIMIDEX [Suspect]
     Indication: BREAST CANCER
     Route: 048
     Dates: start: 20070401
  2. VITAMIN D [Concomitant]
  3. SYNTHROID [Concomitant]
  4. VITAMINS AND SUPPLEMENTS [Concomitant]

REACTIONS (7)
  - ARTHRITIS [None]
  - DEPRESSION [None]
  - INSOMNIA [None]
  - MUSCULOSKELETAL PAIN [None]
  - MUSCULOSKELETAL STIFFNESS [None]
  - NECK PAIN [None]
  - OSTEOPOROSIS [None]
